FAERS Safety Report 15950600 (Version 1)
Quarter: 2019Q1

REPORT INFORMATION
  Report Type: Other
  Country: CN (occurrence: CN)
  Receive Date: 20190212
  Receipt Date: 20190212
  Transmission Date: 20190417
  Serious: Yes (Other)
  Sender: FDA-Public Use
  Company Number: CN-GE HEALTHCARE LIFE SCIENCES-2019CSU000737

PATIENT

DRUGS (6)
  1. OMNIPAQUE [Suspect]
     Active Substance: IOHEXOL
     Indication: PRODUCT USED FOR UNKNOWN INDICATION
  2. DEXAMETHASONE SODIUM PHOSPHATE. [Concomitant]
     Active Substance: DEXAMETHASONE SODIUM PHOSPHATE
     Indication: PREMEDICATION
     Dosage: 5 MG, UNK
     Route: 042
     Dates: start: 20181214, end: 20181214
  3. OMNIPAQUE [Suspect]
     Active Substance: IOHEXOL
     Indication: SKIN TEST
     Dosage: 2 ML, SINGLE
     Route: 023
     Dates: start: 20181214, end: 20181214
  4. OMNIPAQUE [Suspect]
     Active Substance: IOHEXOL
     Indication: ALLERGY TEST
  5. OMNIPAQUE [Suspect]
     Active Substance: IOHEXOL
     Indication: ANGIOCARDIOGRAM
     Dosage: 95 ML, SINGLE
     Route: 042
     Dates: start: 20181214, end: 20181214
  6. DEXAMETHASONE SODIUM PHOSPHATE. [Concomitant]
     Active Substance: DEXAMETHASONE SODIUM PHOSPHATE
     Indication: ALLERGY PROPHYLAXIS

REACTIONS (2)
  - Anaphylactic shock [Recovered/Resolved]
  - Off label use [Recovered/Resolved]

NARRATIVE: CASE EVENT DATE: 20181214
